FAERS Safety Report 8816292 (Version 1)
Quarter: 2012Q4

REPORT INFORMATION
  Report Type: Spontaneous
  Country: US (occurrence: None)
  Receive Date: 20120928
  Receipt Date: 20120928
  Transmission Date: 20130627
  Serious: Yes (Other)
  Sender: FDA-Public Use
  Company Number: None

PATIENT
  Age: 47 Year
  Sex: Female
  Weight: 54 kg

DRUGS (1)
  1. NEUTROGENA AGELESS ESSENTIALS CONTINUOUS HYDRATION DAILY MOISTURIZER SPF25 [Suspect]
     Indication: DRY SKIN MOISTURIZING
     Dosage: 3 pea size, 1x daily, topical
     Route: 061

REACTIONS (6)
  - Rash generalised [None]
  - Swelling face [None]
  - Local swelling [None]
  - Throat tightness [None]
  - Asthma [None]
  - Dyspnoea [None]
